FAERS Safety Report 9654307 (Version 2)
Quarter: 2014Q1

REPORT INFORMATION
  Report Type: Spontaneous
  Country: US (occurrence: US)
  Receive Date: 20131029
  Receipt Date: 20140319
  Transmission Date: 20141002
  Serious: No
  Sender: FDA-Public Use
  Company Number: US-BIOGENIDEC-2013BI084479

PATIENT
  Age: 58 Year
  Sex: Female
  Weight: 48 kg

DRUGS (20)
  1. TECFIDERA [Suspect]
     Indication: MULTIPLE SCLEROSIS
     Route: 048
     Dates: start: 20130716, end: 20130722
  2. TECFIDERA [Suspect]
     Indication: MULTIPLE SCLEROSIS
     Route: 048
     Dates: start: 20130723
  3. TECFIDERA [Suspect]
     Indication: MULTIPLE SCLEROSIS
     Route: 048
  4. FLEXERIL [Concomitant]
     Route: 048
  5. WELLBUTRIN [Concomitant]
     Route: 048
  6. MUCINEX D [Concomitant]
     Route: 048
  7. MIRALAX POWDER [Concomitant]
     Route: 048
  8. INDERAL LA [Concomitant]
  9. FLONASE [Concomitant]
  10. PREVACID [Concomitant]
     Route: 048
  11. FLEXERIL [Concomitant]
     Route: 048
  12. HYDROCHLOROTHIAZIDE [Concomitant]
     Route: 048
  13. CLARINEX [Concomitant]
     Route: 048
  14. ATIVAN [Concomitant]
  15. ASA [Concomitant]
     Route: 048
  16. ADVIL [Concomitant]
     Route: 048
  17. VALTREX [Concomitant]
     Route: 048
  18. ZOCOR [Concomitant]
     Route: 048
  19. DOCUSATE SODIUM [Concomitant]
     Route: 048
  20. LISINOPRIL [Concomitant]
     Route: 048

REACTIONS (7)
  - Constipation [Not Recovered/Not Resolved]
  - Decreased appetite [Not Recovered/Not Resolved]
  - Prescribed underdose [Unknown]
  - Alopecia [Unknown]
  - Muscle spasms [Unknown]
  - Nausea [Not Recovered/Not Resolved]
  - Vomiting [Not Recovered/Not Resolved]
